FAERS Safety Report 14845038 (Version 2)
Quarter: 2018Q2

REPORT INFORMATION
  Report Type: Spontaneous
  Country: US (occurrence: US)
  Receive Date: 20180504
  Receipt Date: 20180517
  Transmission Date: 20180711
  Serious: No
  Sender: FDA-Public Use
  Company Number: US-CELGENEUS-USA-20180500403

PATIENT
  Age: 78 Year
  Sex: Female
  Weight: 55 kg

DRUGS (2)
  1. OTEZLA [Suspect]
     Active Substance: APREMILAST
     Dosage: 60 MILLIGRAM
     Route: 048
     Dates: start: 201802
  2. OTEZLA [Suspect]
     Active Substance: APREMILAST
     Indication: PSORIASIS
     Dosage: 60 MILLIGRAM
     Route: 048
     Dates: start: 20180126

REACTIONS (13)
  - Arthralgia [Not Recovered/Not Resolved]
  - Depression [Unknown]
  - Lethargy [Unknown]
  - Dysgeusia [Unknown]
  - Chills [Unknown]
  - Headache [Recovered/Resolved]
  - Nausea [Recovered/Resolved]
  - Eating disorder [Unknown]
  - Decreased appetite [Not Recovered/Not Resolved]
  - Weight decreased [Unknown]
  - Blood pressure decreased [Unknown]
  - Increased viscosity of upper respiratory secretion [Not Recovered/Not Resolved]
  - Bile acid malabsorption [Unknown]

NARRATIVE: CASE EVENT DATE: 2018
